FAERS Safety Report 9168451 (Version 1)
Quarter: 2013Q1

REPORT INFORMATION
  Report Type: Spontaneous
  Country: AR (occurrence: AR)
  Receive Date: 20130318
  Receipt Date: 20130318
  Transmission Date: 20140127
  Serious: Yes (Hospitalization, Other)
  Sender: FDA-Public Use
  Company Number: PHHY2013AR024526

PATIENT
  Sex: Female

DRUGS (1)
  1. EXFORGE [Suspect]
     Indication: HYPERTENSION
     Dosage: 1 UKN, UNK
     Route: 048
     Dates: start: 2012

REACTIONS (3)
  - Diabetes mellitus [Recovering/Resolving]
  - Visual impairment [Recovering/Resolving]
  - Urinary tract infection [Recovering/Resolving]
